FAERS Safety Report 5312565-6 (Version None)
Quarter: 2007Q2

REPORT INFORMATION
  Report Type: 
  Country: None (occurrence: None)
  Receive Date: 20070430
  Receipt Date: 20070112
  Transmission Date: 20071010
  Serious: No
  Sender: FDA-Public Use
  Company Number: 2007UW00649

PATIENT
  Age: 62 Year
  Sex: Female
  Weight: 61.2 kg

DRUGS (4)
  1. NEXIUM [Suspect]
     Indication: GASTROOESOPHAGEAL REFLUX DISEASE
     Route: 048
     Dates: start: 20060301
  2. CARDIZEM CD [Concomitant]
  3. AMBIEN [Concomitant]
  4. ADVIL [Concomitant]

REACTIONS (13)
  - AGEUSIA [None]
  - BLADDER DISORDER [None]
  - CALCIUM DEFICIENCY [None]
  - DYSGEUSIA [None]
  - GLOSSODYNIA [None]
  - INFECTION [None]
  - LYMPHADENOPATHY [None]
  - MUSCULOSKELETAL CHEST PAIN [None]
  - ORAL PAIN [None]
  - PAROSMIA [None]
  - PRURITUS [None]
  - URTICARIA [None]
  - VITAMIN B12 DEFICIENCY [None]
